FAERS Safety Report 21089426 (Version 2)
Quarter: 2022Q3

REPORT INFORMATION
  Report Type: Report from Study
  Country: DE (occurrence: DE)
  Receive Date: 20220715
  Receipt Date: 20220719
  Transmission Date: 20221027
  Serious: Yes (Death, Other)
  Sender: FDA-Public Use
  Company Number: DE-BRISTOL-MYERS SQUIBB COMPANY-2022-074348

PATIENT
  Age: 75 Year
  Sex: Male

DRUGS (6)
  1. NIVOLUMAB [Suspect]
     Active Substance: NIVOLUMAB
     Indication: Non-Hodgkin^s lymphoma
     Dosage: 1 X/CYCLE
     Route: 042
     Dates: start: 20220614, end: 20220630
  2. GEMCITABINE HYDROCHLORIDE [Suspect]
     Active Substance: GEMCITABINE HYDROCHLORIDE
     Indication: Non-Hodgkin^s lymphoma
     Dosage: 1 X/CYCLE.
     Route: 042
     Dates: start: 20220616, end: 20220630
  3. OXALIPLATIN [Suspect]
     Active Substance: OXALIPLATIN
     Indication: Non-Hodgkin^s lymphoma
     Dosage: 1 X/CYCLE.
     Route: 042
     Dates: start: 20220616, end: 20220630
  4. RITUXIMAB [Suspect]
     Active Substance: RITUXIMAB
     Indication: Non-Hodgkin^s lymphoma
     Dosage: 1 X/CYCLE.
     Route: 042
     Dates: start: 20220615, end: 20220630
  5. PEGFILGRASTIM [Suspect]
     Active Substance: PEGFILGRASTIM
     Indication: Non-Hodgkin^s lymphoma
     Dosage: 1 X/CYCLE.
     Route: 058
     Dates: start: 20220621, end: 20220630
  6. APIXABAN [Concomitant]
     Active Substance: APIXABAN
     Indication: Ventricular fibrillation
     Dosage: FREQUENCY; 2DD
     Route: 048
     Dates: start: 20220616, end: 20220714

REACTIONS (1)
  - Sepsis [Fatal]

NARRATIVE: CASE EVENT DATE: 20220713
